FAERS Safety Report 5340364-8 (Version None)
Quarter: 2007Q2

REPORT INFORMATION
  Report Type: 
  Country: None (occurrence: None)
  Receive Date: 20070405
  Receipt Date: 20061127
  Transmission Date: 20071010
  Serious: No
  Sender: FDA-Public Use
  Company Number: US200610005432

PATIENT
  Age: 69 Year
  Sex: Female

DRUGS (1)
  1. CYMBALTA [Suspect]
     Indication: PAIN
     Dosage: 30 MG
     Dates: start: 20061001

REACTIONS (2)
  - FLANK PAIN [None]
  - URINARY RETENTION [None]
